FAERS Safety Report 10238914 (Version 1)
Quarter: 2014Q1

REPORT INFORMATION
  Report Type: Spontaneous
  Country: US (occurrence: None)
  Receive Date: 20140306
  Receipt Date: 20140306
  Transmission Date: 20141002
  Serious: Yes (Life-Threatening, Other)
  Sender: FDA-Public Use
  Company Number: 163-21880-13040109

PATIENT
  Age: 65 Year
  Sex: Female
  Weight: 90.7 kg

DRUGS (14)
  1. REVLIMID (LENALIDOMIDE) (25 MILLIGRAM, CAPSULES) [Suspect]
     Indication: PLASMA CELL MYELOMA
     Dosage: 25 MG, 21 IN 21 D, PO
     Route: 048
     Dates: start: 20130123
  2. ACYCLOVIR (ACICLOVIR) (TABLETS) [Concomitant]
  3. PRILOSEC (OMEPRAZOLE) (CAPSULES) [Concomitant]
  4. HYDROCODONE ACETAMINOPHEN (VICODIN) (UNKNOWN) [Concomitant]
  5. ENOXAPARIN (ENOXAPARIN) (UNKNOWN) [Concomitant]
  6. ANTACID SIMETHICONE (DIMETICONE, ACTIVATED) (CHEWABLE TABLET) [Concomitant]
  7. ZOLOFT (SERTRALINE HYDROCHLORIDE) (UNKNOWN) [Concomitant]
  8. DEXAMETHASONE (DEXAMETHASONE) (TABLETS) [Concomitant]
  9. SIMVASTATIN (SIMVASTATIN) (TABLETS) [Concomitant]
  10. TYLENOL (PARACETAMOL) (TABLETS) [Concomitant]
  11. ALEVE (NAPROXEN SODIUM) (CAPSULES) [Concomitant]
  12. LORATADINE (LORATADINE) (TABLETS) [Concomitant]
  13. OMEPRAZOLE (OMEPRAZOLE) (UNKNOWN) [Concomitant]
  14. SERTRALINE (SERTRALINE) (UNKNOWN) [Concomitant]

REACTIONS (3)
  - Deep vein thrombosis [None]
  - Pulmonary embolism [None]
  - Deep vein thrombosis [None]
